FAERS Safety Report 15634876 (Version 1)
Quarter: 2018Q4

REPORT INFORMATION
  Report Type: Report from Study
  Country: US (occurrence: US)
  Receive Date: 20181119
  Receipt Date: 20181119
  Transmission Date: 20190205
  Serious: Yes (Other)
  Sender: FDA-Public Use
  Company Number: PHEH2018US048751

PATIENT
  Age: 62 Year
  Sex: Female

DRUGS (1)
  1. TASIGNA [Suspect]
     Active Substance: NILOTINIB
     Indication: PRODUCT USED FOR UNKNOWN INDICATION
     Route: 048

REACTIONS (12)
  - Loss of consciousness [Unknown]
  - Contusion [Unknown]
  - Colitis [Unknown]
  - Hypotension [Unknown]
  - Fall [Unknown]
  - Insomnia [Unknown]
  - Dizziness [Unknown]
  - Vomiting [Unknown]
  - Joint injury [Unknown]
  - Abdominal pain upper [Unknown]
  - Retching [Unknown]
  - Malaise [Unknown]

NARRATIVE: CASE EVENT DATE: 20180804
